FAERS Safety Report 5626182-1 (Version None)
Quarter: 2008Q1

REPORT INFORMATION
  Report Type: 
  Country: None (occurrence: None)
  Receive Date: 20080211
  Receipt Date: 20080123
  Transmission Date: 20080703
  Serious: Yes (Death)
  Sender: FDA-Public Use
  Company Number: 2005JP001429

PATIENT
  Sex: Male

DRUGS (2)
  1. PROGRAF [Suspect]
     Indication: LIVER TRANSPLANT
  2. CYCLOPHOSPHAMIDE [Suspect]

REACTIONS (4)
  - CEREBRAL HAEMORRHAGE [None]
  - HAEMOLYTIC ANAEMIA [None]
  - THROMBOCYTOPENIA [None]
  - THROMBOTIC MICROANGIOPATHY [None]
